FAERS Safety Report 20761418 (Version 1)
Quarter: 2022Q2

REPORT INFORMATION
  Report Type: Spontaneous
  Country: US (occurrence: US)
  Receive Date: 20220428
  Receipt Date: 20220428
  Transmission Date: 20220720
  Serious: Yes (Other)
  Sender: FDA-Public Use
  Company Number: US-TOLMAR, INC.-21US032200

PATIENT
  Age: 72 Year
  Sex: Male

DRUGS (2)
  1. ELIGARD [Suspect]
     Active Substance: LEUPROLIDE ACETATE
     Indication: Prostate cancer
     Dosage: 45 MILLIGRAM
     Dates: start: 20210920
  2. UNSPECIFIED INGREDIENT [Concomitant]
     Active Substance: UNSPECIFIED INGREDIENT
     Indication: Prostate cancer
     Dosage: UNK
     Dates: start: 20211201

REACTIONS (3)
  - Drug ineffective [Not Recovered/Not Resolved]
  - Blood testosterone abnormal [Not Recovered/Not Resolved]
  - Prostatic specific antigen abnormal [Not Recovered/Not Resolved]

NARRATIVE: CASE EVENT DATE: 20211220
